FAERS Safety Report 13238947 (Version 1)
Quarter: 2017Q1

REPORT INFORMATION
  Report Type: Spontaneous
  Country: US (occurrence: US)
  Receive Date: 20170215
  Receipt Date: 20170215
  Transmission Date: 20170428
  Serious: Yes (Other)
  Sender: FDA-Public Use
  Company Number: None

PATIENT
  Age: 56 Year
  Sex: Female
  Weight: 65.29 kg

DRUGS (1)
  1. GENERIC CRESTOR [Suspect]
     Active Substance: ROSUVASTATIN CALCIUM
     Dates: start: 20110601, end: 20110615

REACTIONS (6)
  - Drooling [None]
  - Product substitution issue [None]
  - Swelling face [None]
  - Peripheral swelling [None]
  - Glossitis [None]
  - Hypersensitivity [None]

NARRATIVE: CASE EVENT DATE: 20110601
